FAERS Safety Report 10309510 (Version 2)
Quarter: 2014Q4

REPORT INFORMATION
  Report Type: Spontaneous
  Country: FR (occurrence: FR)
  Receive Date: 20140717
  Receipt Date: 20141209
  Transmission Date: 20150528
  Serious: Yes (Other)
  Sender: FDA-Public Use
  Company Number: FR-ROCHE-1435901

PATIENT
  Age: 45 Year
  Sex: Female

DRUGS (2)
  1. TAXOL [Concomitant]
     Active Substance: PACLITAXEL
  2. HERCEPTIN [Suspect]
     Active Substance: TRASTUZUMAB
     Indication: HER-2 POSITIVE BREAST CANCER
     Route: 065

REACTIONS (7)
  - Fatigue [Recovered/Resolved]
  - Visual field defect [Recovered/Resolved]
  - Nausea [Recovered/Resolved]
  - Headache [Recovered/Resolved]
  - Dizziness [Recovered/Resolved]
  - Vertigo [Recovered/Resolved]
  - Hypotension [Not Recovered/Not Resolved]
